FAERS Safety Report 7640762-3 (Version None)
Quarter: 2011Q3

REPORT INFORMATION
  Report Type: 
  Country: None (occurrence: None)
  Receive Date: 20110721
  Receipt Date: 20110718
  Transmission Date: 20111222
  Serious: Yes (Death)
  Sender: FDA-Public Use
  Company Number: 201110891

PATIENT
  Sex: Male

DRUGS (5)
  1. LIORESAL [Suspect]
     Indication: MUSCLE SPASTICITY
     Dosage: 232.75 MCG-186.45 MCG, DAIL, INTR
     Route: 037
  2. DILAUDID [Concomitant]
  3. BUPIVICAINE [Concomitant]
  4. DROPERIDOL [Concomitant]
  5. CLONIDINE [Concomitant]

REACTIONS (1)
  - DEATH [None]
